FAERS Safety Report 4744963-3 (Version None)
Quarter: 2005Q3

REPORT INFORMATION
  Report Type: 
  Country: None (occurrence: None)
  Receive Date: 20050811
  Receipt Date: 20050802
  Transmission Date: 20060218
  Serious: Yes (Other)
  Sender: FDA-Public Use
  Company Number: 2005110878

PATIENT
  Age: 63 Year
  Sex: Female
  Weight: 65.318 kg

DRUGS (9)
  1. ZOLOFT [Suspect]
     Indication: DEPRESSION
     Dosage: 100 MG (100 MG, 1 IN 1 D), ORAL
     Route: 048
     Dates: start: 20050101
  2. LEVOTHYROXINE SODIUM [Concomitant]
  3. NIFEDIPINE [Concomitant]
  4. PROVIGIL [Concomitant]
  5. IMIPRAMINE [Concomitant]
  6. LITHIUM CARBONATE [Concomitant]
  7. CLONAZEPAM [Concomitant]
  8. NORVASC [Concomitant]
  9. PROTONIX [Concomitant]

REACTIONS (1)
  - OESOPHAGEAL CARCINOMA [None]
